FAERS Safety Report 4424863-9 (Version None)
Quarter: 2004Q3

REPORT INFORMATION
  Report Type: 
  Country: None (occurrence: None)
  Receive Date: 20040719
  Receipt Date: 20040301
  Transmission Date: 20050211
  Serious: Yes (Hospitalization)
  Sender: FDA-Public Use
  Company Number: 193570

PATIENT
  Age: 36 Year
  Sex: Female
  Weight: 104.3273 kg

DRUGS (6)
  1. AVONEX [Suspect]
     Indication: MULTIPLE SCLEROSIS
     Dosage: 30 MCG QW IM
     Route: 030
     Dates: start: 20020901
  2. BACLOFEN [Concomitant]
  3. NEURONTIN [Concomitant]
  4. ACCUPRIL [Concomitant]
  5. HYDROCHLOROTHIAZIDE [Concomitant]
  6. GLUCOPHAGE ^UNS^ [Concomitant]

REACTIONS (4)
  - BURNING SENSATION [None]
  - DEPRESSION [None]
  - DERMOID CYST [None]
  - SUICIDAL IDEATION [None]
